FAERS Safety Report 7783442-6 (Version None)
Quarter: 2011Q3

REPORT INFORMATION
  Report Type: 
  Country: None (occurrence: None)
  Receive Date: 20110928
  Receipt Date: 20110928
  Transmission Date: 20111222
  Serious: Yes (Hospitalization, Other)
  Sender: FDA-Public Use
  Company Number: None

PATIENT
  Sex: Male

DRUGS (1)
  1. ZOCOR [Suspect]
     Indication: BLOOD CHOLESTEROL ABNORMAL

REACTIONS (5)
  - NO THERAPEUTIC RESPONSE [None]
  - BACK PAIN [None]
  - FEELING ABNORMAL [None]
  - AMNESIA [None]
  - ABASIA [None]
